FAERS Safety Report 8251087-X (Version None)
Quarter: 2012Q2

REPORT INFORMATION
  Report Type: 
  Country: None (occurrence: None)
  Receive Date: 20120402
  Receipt Date: 20120328
  Transmission Date: 20120825
  Serious: Yes (Hospitalization, Other)
  Sender: FDA-Public Use
  Company Number: ES-ABBOTT-11P-144-0859273-00

PATIENT
  Sex: Female
  Weight: 65 kg

DRUGS (6)
  1. FOLIC ACID [Concomitant]
     Indication: PRODUCT USED FOR UNKNOWN INDICATION
     Route: 048
  2. METHYLPREDNISOLONE [Concomitant]
     Indication: RHEUMATOID ARTHRITIS
     Route: 048
  3. HUMIRA [Suspect]
     Indication: RHEUMATOID ARTHRITIS
     Route: 058
     Dates: start: 20060504, end: 20111101
  4. METHOTREXATE [Concomitant]
     Indication: RHEUMATOID ARTHRITIS
  5. DULOXETIME HYDROCHLORIDE [Concomitant]
     Indication: PRODUCT USED FOR UNKNOWN INDICATION
     Route: 048
  6. FENTANYL [Concomitant]
     Indication: PAIN
     Dosage: PATCHES (50 MG/H)
     Route: 062

REACTIONS (7)
  - RESPIRATORY TRACT INFECTION [None]
  - PRODUCTIVE COUGH [None]
  - MALAISE [None]
  - CANDIDA TEST POSITIVE [None]
  - SPUTUM PURULENT [None]
  - PYREXIA [None]
  - URINARY TRACT DISORDER [None]
